FAERS Safety Report 8446957-3 (Version None)
Quarter: 2012Q2

REPORT INFORMATION
  Report Type: 
  Country: None (occurrence: None)
  Receive Date: 20120613
  Receipt Date: 20120613
  Transmission Date: 20120825
  Serious: Yes (Hospitalization, Other)
  Sender: FDA-Public Use
  Company Number: None

PATIENT
  Sex: Male
  Weight: 90.7194 kg

DRUGS (2)
  1. ZOLOFT [Suspect]
     Indication: DEPRESSED MOOD
     Dosage: 100ML 1XDAY
     Dates: start: 20100701, end: 20120613
  2. ZOLOFT [Suspect]
     Indication: ANXIETY
     Dosage: 100ML 1XDAY
     Dates: start: 20100701, end: 20120613

REACTIONS (6)
  - MALAISE [None]
  - FEELING ABNORMAL [None]
  - WITHDRAWAL SYNDROME [None]
  - TACHYPHRENIA [None]
  - CONFUSIONAL STATE [None]
  - PANIC ATTACK [None]
